FAERS Safety Report 10195276 (Version 1)
Quarter: 2014Q2

REPORT INFORMATION
  Report Type: Spontaneous
  Country: FR (occurrence: FR)
  Receive Date: 20140526
  Receipt Date: 20140526
  Transmission Date: 20141212
  Serious: Yes (Other)
  Sender: FDA-Public Use
  Company Number: FR-JNJFOC-20140513018

PATIENT
  Age: 81 Year
  Sex: Male
  Weight: 94.78 kg

DRUGS (3)
  1. XARELTO [Suspect]
     Indication: PRODUCT USED FOR UNKNOWN INDICATION
     Route: 048
     Dates: start: 20131009
  2. CARDENSIEL [Concomitant]
     Route: 048
  3. FLECAINE [Concomitant]
     Route: 048

REACTIONS (3)
  - Visual acuity reduced [Not Recovered/Not Resolved]
  - Cough [Not Recovered/Not Resolved]
  - Colour blindness [Not Recovered/Not Resolved]
